FAERS Safety Report 21996933 (Version 4)
Quarter: 2024Q1

REPORT INFORMATION
  Report Type: Report from Study
  Country: JP (occurrence: JP)
  Receive Date: 20230215
  Receipt Date: 20240215
  Transmission Date: 20240410
  Serious: Yes (Death, Hospitalization, Other)
  Sender: FDA-Public Use
  Company Number: JP-002147023-NVSJ2023JP002966

PATIENT
  Age: 69 Year
  Sex: Male

DRUGS (6)
  1. TABRECTA [Suspect]
     Active Substance: CAPMATINIB
     Indication: Non-small cell lung cancer recurrent
     Dosage: 800 MG
     Route: 048
     Dates: start: 20220914, end: 20221013
  2. TABRECTA [Suspect]
     Active Substance: CAPMATINIB
     Dosage: 800 MG
     Route: 048
     Dates: start: 20221213, end: 20230123
  3. CODEINE PHOSPHATE [Concomitant]
     Active Substance: CODEINE PHOSPHATE
     Indication: Non-small cell lung cancer recurrent
     Dosage: UNK
     Route: 048
  4. ACETAMINOPHEN [Concomitant]
     Active Substance: ACETAMINOPHEN
     Indication: Non-small cell lung cancer recurrent
     Dosage: UNK
     Route: 048
  5. TRAMADOL HYDROCHLORIDE [Concomitant]
     Active Substance: TRAMADOL HYDROCHLORIDE
     Indication: Non-small cell lung cancer recurrent
     Dosage: UNK
     Route: 048
  6. TRAMADOL HYDROCHLORIDE [Concomitant]
     Active Substance: TRAMADOL HYDROCHLORIDE
     Indication: Non-small cell lung cancer recurrent
     Dosage: UNK
     Route: 048

REACTIONS (15)
  - Non-small cell lung cancer recurrent [Fatal]
  - Malignant neoplasm progression [Fatal]
  - Metastases to adrenals [Fatal]
  - Metastases to liver [Fatal]
  - Metastases to lymph nodes [Fatal]
  - Oedema peripheral [Recovering/Resolving]
  - Gait disturbance [Unknown]
  - Tumour rupture [Unknown]
  - Intra-abdominal haemorrhage [Unknown]
  - Disseminated intravascular coagulation [Unknown]
  - Metastases to lung [Unknown]
  - Bone marrow tumour cell infiltration [Unknown]
  - Platelet count decreased [Recovering/Resolving]
  - Drug ineffective [Unknown]
  - Lymphadenopathy [Unknown]

NARRATIVE: CASE EVENT DATE: 20221006
